FAERS Safety Report 7210417-8 (Version None)
Quarter: 2011Q1

REPORT INFORMATION
  Report Type: 
  Country: None (occurrence: None)
  Receive Date: 20110105
  Receipt Date: 20110103
  Transmission Date: 20110831
  Serious: Yes (Other)
  Sender: FDA-Public Use
  Company Number: GXKR2010DE14211

PATIENT
  Sex: Female
  Weight: 60 kg

DRUGS (1)
  1. FORMOTEROL HEXAL [Suspect]
     Dosage: AS NEEDED

REACTIONS (1)
  - ANGIOEDEMA [None]
